FAERS Safety Report 26209186 (Version 1)
Quarter: 2025Q4

REPORT INFORMATION
  Report Type: Spontaneous
  Country: CN (occurrence: CN)
  Receive Date: 20251229
  Receipt Date: 20251229
  Transmission Date: 20260118
  Serious: Yes (Other)
  Sender: PURDUE
  Company Number: CN-NAPPMUNDI-GBR-2025-0131594

PATIENT
  Age: 80 Year
  Sex: Male
  Weight: 53 kg

DRUGS (1)
  1. OXYCODONE HYDROCHLORIDE [Suspect]
     Active Substance: OXYCODONE HYDROCHLORIDE
     Indication: Cancer pain
     Dosage: 80 MILLIGRAM, DAILY
     Route: 048
     Dates: start: 20250526, end: 20250606

REACTIONS (4)
  - Somnolence [Recovering/Resolving]
  - Disorganised speech [Recovered/Resolved]
  - Miosis [Recovered/Resolved]
  - Pupillary reflex impaired [Recovered/Resolved]

NARRATIVE: CASE EVENT DATE: 20250606
